FAERS Safety Report 6180664-5 (Version None)
Quarter: 2009Q2

REPORT INFORMATION
  Report Type: 
  Country: None (occurrence: None)
  Receive Date: 20090428
  Receipt Date: 20090312
  Transmission Date: 20091009
  Serious: Yes (Life-Threatening, Hospitalization)
  Sender: FDA-Public Use
  Company Number: 2009AL000002

PATIENT
  Age: 34 Year
  Sex: Male
  Weight: 58.9676 kg

DRUGS (3)
  1. ALLERGENIC EXTRACTS - UNIDENTIFIED [Suspect]
     Indication: HYPERSENSITIVITY
     Dosage: SUBCUTANEOUS
     Route: 058
     Dates: start: 20080601, end: 20090201
  2. NEXIUM? (ESOMEPRAZOLE MAGNESIUM) [Concomitant]
  3. NASOCORT? (TRIAMCINOLONE) NASAL SPRAY [Concomitant]

REACTIONS (6)
  - CHEST DISCOMFORT [None]
  - CONVULSION [None]
  - LOSS OF CONSCIOUSNESS [None]
  - PUPIL FIXED [None]
  - URTICARIA [None]
  - VOMITING [None]
